FAERS Safety Report 14450765 (Version 1)
Quarter: 2018Q1

REPORT INFORMATION
  Report Type: Spontaneous
  Country: US (occurrence: US)
  Receive Date: 20180126
  Receipt Date: 20180126
  Transmission Date: 20180509
  Serious: No
  Sender: FDA-Public Use
  Company Number: None

PATIENT
  Age: 70 Year
  Sex: Female
  Weight: 49.5 kg

DRUGS (1)
  1. WALGREENS ADVANCED REGULAR STRENGTH ANTACID LIQUID [Suspect]
     Active Substance: ALUMINUM HYDROXIDE\DIMETHICONE\MAGNESIUM HYDROXIDE
     Indication: GASTROOESOPHAGEAL REFLUX DISEASE
     Route: 048
     Dates: start: 20180124, end: 20180124

REACTIONS (3)
  - Pharyngeal hypoaesthesia [None]
  - Hypoaesthesia oral [None]
  - Manufacturing materials issue [None]

NARRATIVE: CASE EVENT DATE: 20180124
